FAERS Safety Report 7153903-1 (Version None)
Quarter: 2010Q4

REPORT INFORMATION
  Report Type: 
  Country: None (occurrence: None)
  Receive Date: 20101129
  Receipt Date: 20100909
  Transmission Date: 20110411
  Serious: Yes (Hospitalization)
  Sender: FDA-Public Use
  Company Number: GER/GER/10/0016618

PATIENT
  Age: 78 Year
  Sex: Male
  Weight: 85 kg

DRUGS (8)
  1. ALLOPURINOL [Suspect]
     Indication: PRODUCT USED FOR UNKNOWN INDICATION
     Dosage: ORAL
     Route: 048
  2. BENDAMUSTIN (BENDAMUSTINE) [Suspect]
     Indication: CHRONIC LYMPHOCYTIC LEUKAEMIA
     Dosage: 170 MG, 1 IN 1 D, INTRAVENOUS
  3. RITUXIMAB (RITUXIMAB) [Suspect]
     Indication: CHRONIC LYMPHOCYTIC LEUKAEMIA
     Dosage: 950 MG, 1 IN 1 D, INTRAVENOUS
     Route: 042
     Dates: start: 20100119, end: 20100318
  4. VERGENTAN (ALIZAPRIDE HYDROCHLORIDE) [Suspect]
     Indication: NAUSEA
     Dosage: ORAL
     Route: 048
  5. PREDNISOLONE [Concomitant]
  6. RANITIDINE HCL [Concomitant]
  7. CLEMASTINE FUMARATE [Concomitant]
  8. GRANISETRON HCL [Concomitant]

REACTIONS (2)
  - INTERSTITIAL LUNG DISEASE [None]
  - SEPSIS [None]
